FAERS Safety Report 10532557 (Version 14)
Quarter: 2016Q1

REPORT INFORMATION
  Report Type: Report from Study
  Country: CA (occurrence: CA)
  Receive Date: 20141021
  Receipt Date: 20160215
  Transmission Date: 20160525
  Serious: Yes (Other)
  Sender: FDA-Public Use
  Company Number: CA-ROCHE-1266162

PATIENT
  Age: 37 Year
  Sex: Female
  Weight: 54.5 kg

DRUGS (7)
  1. PERJETA [Suspect]
     Active Substance: PERTUZUMAB
     Dosage: MOST RECENT DOSE PRIOR TO NEUROPATHY TO BOTH HANDS: 15/AUG/2013
     Route: 042
     Dates: start: 20131219
  2. TAXOTERE [Suspect]
     Active Substance: DOCETAXEL
     Indication: BREAST CANCER METASTATIC
     Route: 065
  3. TAXOL [Suspect]
     Active Substance: PACLITAXEL
     Indication: BREAST CANCER
     Dosage: MOST RECENT DOSE PRIOR TO NEUROPATHY TO BOTH HANDS: 16/AUG/2013
     Route: 042
     Dates: start: 20130724, end: 20131201
  4. XGEVA [Concomitant]
     Active Substance: DENOSUMAB
  5. HERCEPTIN [Suspect]
     Active Substance: TRASTUZUMAB
     Indication: BREAST CANCER METASTATIC
     Dosage: MOST RECENT DOSE PRIOR TO NEUROPATHY TO BOTH HANDS: 16/AUG/2013
     Route: 042
     Dates: start: 20130724
  6. VITAMIN B6 [Concomitant]
     Active Substance: PYRIDOXINE HYDROCHLORIDE
  7. PERJETA [Suspect]
     Active Substance: PERTUZUMAB
     Indication: HER-2 POSITIVE BREAST CANCER
     Route: 042
     Dates: start: 20130718, end: 20130718

REACTIONS (24)
  - Back pain [Unknown]
  - Myalgia [Recovered/Resolved]
  - Radiation skin injury [Unknown]
  - Hypotension [Unknown]
  - Conjunctival haemorrhage [Recovering/Resolving]
  - Nasopharyngitis [Recovering/Resolving]
  - Rhinorrhoea [Recovered/Resolved]
  - Hypotension [Unknown]
  - Heart rate increased [Unknown]
  - Thyroid function test abnormal [Unknown]
  - Hot flush [Not Recovered/Not Resolved]
  - Cough [Recovering/Resolving]
  - Body temperature decreased [Unknown]
  - Epistaxis [Unknown]
  - Oropharyngeal pain [Recovering/Resolving]
  - Musculoskeletal pain [Unknown]
  - Seasonal allergy [Not Recovered/Not Resolved]
  - Pyrexia [Recovered/Resolved]
  - Heart rate increased [Unknown]
  - Thyroxine abnormal [Not Recovered/Not Resolved]
  - Neuropathy peripheral [Recovered/Resolved]
  - Stomatitis [Recovering/Resolving]
  - Pyrexia [Recovered/Resolved]
  - Weight decreased [Unknown]

NARRATIVE: CASE EVENT DATE: 20130817
